FAERS Safety Report 13644353 (Version 1)
Quarter: 2017Q2

REPORT INFORMATION
  Report Type: Spontaneous
  Country: US (occurrence: US)
  Receive Date: 20170612
  Receipt Date: 20170612
  Transmission Date: 20170830
  Serious: No
  Sender: FDA-Public Use
  Company Number: US-ROCHE-690800

PATIENT
  Age: 55 Year
  Sex: Female
  Weight: 62.6 kg

DRUGS (4)
  1. CLONAZEPAM. [Suspect]
     Active Substance: CLONAZEPAM
     Indication: ANXIETY
     Dosage: OTHER INDICATION: EPILEPSY
     Route: 065
  2. KLONOPIN [Suspect]
     Active Substance: CLONAZEPAM
     Indication: ANXIETY
     Route: 048
  3. ADVIL [Concomitant]
     Active Substance: IBUPROFEN
     Dosage: FREQUENCY: PRN
     Route: 065
  4. KLONOPIN [Suspect]
     Active Substance: CLONAZEPAM
     Dosage: FREQUENCY: AT BED TIME, OTHER INDICATION: EPILEPSY
     Route: 048

REACTIONS (1)
  - Dizziness [Unknown]
